FAERS Safety Report 13278582 (Version 2)
Quarter: 2017Q1

REPORT INFORMATION
  Report Type: Spontaneous
  Country: None (occurrence: US)
  Receive Date: 20170228
  Receipt Date: 20170321
  Transmission Date: 20170428
  Serious: No
  Sender: FDA-Public Use
  Company Number: US-MERZ NORTH AMERICA, INC.-17MRZ-00050

PATIENT
  Sex: Female
  Weight: 49.49 kg

DRUGS (2)
  1. XEOMIN [Suspect]
     Active Substance: INCOBOTULINUMTOXINA
     Dosage: 20 UNITS
     Dates: start: 201702
  2. XEOMIN [Suspect]
     Active Substance: INCOBOTULINUMTOXINA
     Indication: SKIN WRINKLING
     Dosage: 18 UNITS EVERY 3 WEEKS
     Route: 058
     Dates: start: 20170131, end: 20170211

REACTIONS (1)
  - Drug ineffective [Not Recovered/Not Resolved]
